FAERS Safety Report 8154180-5 (Version None)
Quarter: 2012Q1

REPORT INFORMATION
  Report Type: 
  Country: None (occurrence: None)
  Receive Date: 20120221
  Receipt Date: 20120216
  Transmission Date: 20120608
  Serious: Yes (Other)
  Sender: FDA-Public Use
  Company Number: US-PFIZER INC-2012031585

PATIENT
  Sex: Female
  Weight: 15.42 kg

DRUGS (2)
  1. AMOXICILLIN [Suspect]
     Indication: EAR INFECTION
     Dosage: UNK
     Dates: start: 20120118, end: 20120122
  2. AZITHROMYCIN [Suspect]

REACTIONS (10)
  - SWOLLEN TONGUE [None]
  - CONDITION AGGRAVATED [None]
  - RASH PRURITIC [None]
  - RASH [None]
  - LIP SWELLING [None]
  - PYREXIA [None]
  - VOMITING [None]
  - AURICULAR SWELLING [None]
  - ERYTHEMA [None]
  - DRUG HYPERSENSITIVITY [None]
